FAERS Safety Report 6530316-4 (Version None)
Quarter: 2010Q1

REPORT INFORMATION
  Report Type: 
  Country: None (occurrence: None)
  Receive Date: 20100107
  Receipt Date: 20091229
  Transmission Date: 20100710
  Serious: Yes (Death, Hospitalization)
  Sender: FDA-Public Use
  Company Number: US-JNJFOC-20091207728

PATIENT
  Age: 83 Year
  Sex: Female
  Weight: 136.08 kg

DRUGS (3)
  1. TYLENOL (CAPLET) [Suspect]
     Route: 048
  2. TYLENOL (CAPLET) [Suspect]
     Indication: JOINT SPRAIN
     Route: 048
  3. BLOOD PRESSURE MEDICATION NOS [Concomitant]

REACTIONS (5)
  - CARDIAC ARREST [None]
  - HAEMORRHAGE [None]
  - PRODUCT QUALITY ISSUE [None]
  - RECTAL HAEMORRHAGE [None]
  - SMALL INTESTINE ULCER [None]
